FAERS Safety Report 16353596 (Version 1)
Quarter: 2019Q2

REPORT INFORMATION
  Report Type: Spontaneous
  Country: IT (occurrence: IT)
  Receive Date: 20190524
  Receipt Date: 20190524
  Transmission Date: 20190711
  Serious: Yes (Other)
  Sender: FDA-Public Use
  Company Number: IT-PFIZER INC-2019220237

PATIENT
  Age: 23 Year
  Sex: Female
  Weight: 70 kg

DRUGS (1)
  1. XANAX [Suspect]
     Active Substance: ALPRAZOLAM
     Indication: PANIC ATTACK
     Dosage: 2.5 UG, AS NEEDED
     Route: 048

REACTIONS (7)
  - Headache [Recovered/Resolved]
  - Amnesia [Recovered/Resolved]
  - Vomiting [Recovered/Resolved]
  - Balance disorder [Recovered/Resolved]
  - Loss of consciousness [Recovered/Resolved]
  - Confusional state [Recovered/Resolved]
  - Nausea [Recovered/Resolved]

NARRATIVE: CASE EVENT DATE: 20190506
